FAERS Safety Report 11154902 (Version 1)
Quarter: 2015Q2

REPORT INFORMATION
  Report Type: Spontaneous
  Country: US (occurrence: None)
  Receive Date: 20150601
  Receipt Date: 20150601
  Transmission Date: 20150821
  Serious: No
  Sender: FDA-Public Use
  Company Number: None

PATIENT
  Age: 57 Year
  Sex: Male
  Weight: 99.34 kg

DRUGS (19)
  1. ALOE VESTA OINTMENT [Concomitant]
  2. SIMETHICONE [Concomitant]
     Active Substance: DIMETHICONE\SILICON DIOXIDE\SIMETHICONE
  3. SPIRONOLACTONE. [Concomitant]
     Active Substance: SPIRONOLACTONE
  4. SULFAMETHOXAZOLE/TRIMETHOPRIM [Concomitant]
     Active Substance: SULFAMETHOXAZOLE\TRIMETHOPRIM
  5. MYCOPHENOLATE MOFETIL. [Suspect]
     Active Substance: MYCOPHENOLATE MOFETIL
     Indication: HEPATITIS ALCOHOLIC
     Route: 048
     Dates: start: 20150403, end: 20150414
  6. SILDENAFIL CITRATE. [Concomitant]
     Active Substance: SILDENAFIL CITRATE
  7. TRAZODONE [Concomitant]
     Active Substance: TRAZODONE HYDROCHLORIDE
  8. DICLOFENAC [Concomitant]
     Active Substance: DICLOFENAC
  9. MULTIVITAMIN [Concomitant]
     Active Substance: VITAMINS
  10. METFORMIN [Concomitant]
     Active Substance: METFORMIN HYDROCHLORIDE
  11. BACLOFEN. [Concomitant]
     Active Substance: BACLOFEN
  12. GABAPENTIN. [Concomitant]
     Active Substance: GABAPENTIN
  13. FUROSEMIDE. [Concomitant]
     Active Substance: FUROSEMIDE
  14. CHLORECALCIFEROL [Concomitant]
  15. PANTOPRAZOLE [Concomitant]
     Active Substance: PANTOPRAZOLE SODIUM
  16. LEVOFLOLAXIN [Concomitant]
  17. LACTULOSE. [Concomitant]
     Active Substance: LACTULOSE
  18. STOMAHESIVE POWDER [Concomitant]
  19. GLIMPIRIDE [Concomitant]

REACTIONS (3)
  - Mental status changes [None]
  - Haematuria [None]
  - Urinary tract infection [None]

NARRATIVE: CASE EVENT DATE: 20150414
